FAERS Safety Report 8847784 (Version 4)
Quarter: 2012Q4

REPORT INFORMATION
  Report Type: 
  Country: CH (occurrence: CH)
  Receive Date: 20121018
  Receipt Date: 20121109
  Transmission Date: 20130627
  Serious: Yes (Life-Threatening, Hospitalization, Disabling, Other)
  Sender: FDA-Public Use
  Company Number: CH-B.I. PHARMACEUTICALS,INC./RIDGEFIELD-2012-AP-00877SI

PATIENT
  Age: 81 Year
  Sex: Male
  Weight: 62 kg

DRUGS (8)
  1. PRADAXA [Suspect]
     Indication: MITRAL VALVE INCOMPETENCE
     Dosage: 220 mg
     Dates: start: 20120120, end: 20120412
  2. PRADAXA [Suspect]
     Indication: ATRIAL SEPTAL DEFECT
  3. PRADAXA [Suspect]
     Indication: CEREBROVASCULAR ACCIDENT
  4. PREDNISON [Suspect]
     Indication: PEMPHIGOID
  5. CODIOVAN [Concomitant]
     Indication: HYPERTENSION
     Dosage: 80/12.5 mg
  6. LEVEMIR [Concomitant]
     Indication: DIABETES MELLITUS
     Dosage: 0-12-0
     Route: 058
     Dates: end: 201207
  7. JANUMET [Concomitant]
     Dosage: 2x 50/850 mg
  8. DAONIL [Concomitant]
     Dosage: 10 mg

REACTIONS (4)
  - Pemphigoid [Not Recovered/Not Resolved]
  - Endocarditis [Recovered/Resolved]
  - Diabetes mellitus [Not Recovered/Not Resolved]
  - Anaemia [Unknown]
